FAERS Safety Report 24556139 (Version 19)
Quarter: 2025Q2

REPORT INFORMATION
  Report Type: Report from Study
  Country: CO (occurrence: CO)
  Receive Date: 20241028
  Receipt Date: 20250625
  Transmission Date: 20250716
  Serious: Yes (Hospitalization, Other)
  Sender: TAKEDA
  Company Number: CO-TAKEDA-2024TUS083967

PATIENT
  Age: 10 Year
  Sex: Female
  Weight: 85 kg

DRUGS (3)
  1. VELAGLUCERASE ALFA [Suspect]
     Active Substance: VELAGLUCERASE ALFA
     Indication: Gaucher^s disease
     Dosage: 5100 INTERNATIONAL UNIT, Q2WEEKS
     Dates: start: 20200316
  2. VELAGLUCERASE ALFA [Suspect]
     Active Substance: VELAGLUCERASE ALFA
     Dosage: 5100 INTERNATIONAL UNIT, Q2WEEKS
  3. VELAGLUCERASE ALFA [Suspect]
     Active Substance: VELAGLUCERASE ALFA
     Dosage: 5580 INTERNATIONAL UNIT, Q2WEEKS

REACTIONS (39)
  - Urinary tract infection [Recovered/Resolved]
  - Klebsiella bacteraemia [Recovered/Resolved]
  - Diarrhoea [Not Recovered/Not Resolved]
  - Urinary tract infection bacterial [Unknown]
  - Dysstasia [Unknown]
  - Cellulitis [Recovered/Resolved]
  - Productive cough [Not Recovered/Not Resolved]
  - Cough [Not Recovered/Not Resolved]
  - Pyrexia [Unknown]
  - Vomiting [Not Recovered/Not Resolved]
  - Puncture site pain [Recovered/Resolved]
  - Poor venous access [Recovered/Resolved]
  - Pain [Recovered/Resolved]
  - Discomfort [Recovered/Resolved]
  - Treatment noncompliance [Unknown]
  - Weight increased [Unknown]
  - Product availability issue [Unknown]
  - Product dose omission issue [Unknown]
  - Illness [Not Recovered/Not Resolved]
  - Gastroenteritis [Not Recovered/Not Resolved]
  - Epistaxis [Recovered/Resolved]
  - Incorrect dose administered [Unknown]
  - Urine odour abnormal [Not Recovered/Not Resolved]
  - Heat stroke [Not Recovered/Not Resolved]
  - Arthritis [Unknown]
  - Drug ineffective [Unknown]
  - Crying [Recovered/Resolved]
  - Dysmenorrhoea [Unknown]
  - Menstruation irregular [Unknown]
  - Fall [Unknown]
  - Vaginal odour [Unknown]
  - Gaucher^s disease [Recovered/Resolved]
  - Norovirus infection [Recovered/Resolved]
  - Influenza [Unknown]
  - Vaccine induced antibody absent [Unknown]
  - Dizziness [Not Recovered/Not Resolved]
  - Headache [Not Recovered/Not Resolved]
  - Arthralgia [Unknown]
  - Back pain [Unknown]

NARRATIVE: CASE EVENT DATE: 20240814
